FAERS Safety Report 12127192 (Version 4)
Quarter: 2016Q2

REPORT INFORMATION
  Report Type: Spontaneous
  Country: GB (occurrence: GB)
  Receive Date: 20160229
  Receipt Date: 20160602
  Transmission Date: 20160815
  Serious: Yes (Other)
  Sender: FDA-Public Use
  Company Number: GB-GILEAD-2016-0197391

PATIENT
  Age: 59 Year
  Sex: Male
  Weight: 113.9 kg

DRUGS (2)
  1. HARVONI [Suspect]
     Active Substance: LEDIPASVIR\SOFOSBUVIR
     Indication: HEPATITIS C
     Dosage: 1 DF, UNK
     Route: 048
     Dates: start: 20151029, end: 20151217
  2. RIBAVIRIN. [Suspect]
     Active Substance: RIBAVIRIN
     Indication: HEPATITIS C
     Dosage: UNK
     Route: 048
     Dates: start: 20151029, end: 20151217

REACTIONS (3)
  - Chronic pigmented purpura [Recovering/Resolving]
  - Eczema [Unknown]
  - Treatment failure [Unknown]

NARRATIVE: CASE EVENT DATE: 20151205
